FAERS Safety Report 7739366-3 (Version None)
Quarter: 2011Q3

REPORT INFORMATION
  Report Type: 
  Country: None (occurrence: None)
  Receive Date: 20110909
  Receipt Date: 20101014
  Transmission Date: 20111222
  Serious: No
  Sender: FDA-Public Use
  Company Number: US-MYLANLABS-2011S1000182

PATIENT
  Age: 71 Year
  Sex: Female

DRUGS (1)
  1. ULTIVA [Suspect]
     Route: 042

REACTIONS (1)
  - DRUG INEFFECTIVE [None]
